FAERS Safety Report 13638270 (Version 1)
Quarter: 2017Q2

REPORT INFORMATION
  Report Type: Spontaneous
  Country: US (occurrence: US)
  Receive Date: 20170609
  Receipt Date: 20170609
  Transmission Date: 20170830
  Serious: Yes (Other)
  Sender: FDA-Public Use
  Company Number: US-PFIZER INC-2017244068

PATIENT
  Age: 35 Year
  Sex: Female

DRUGS (12)
  1. XELJANZ XR [Concomitant]
     Active Substance: TOFACITINIB CITRATE
     Indication: RHEUMATOID ARTHRITIS
     Dosage: 11 MG, 1X/DAY
     Route: 048
  2. CIMZIA [Suspect]
     Active Substance: CERTOLIZUMAB PEGOL
     Dosage: 200 MG, WEEKLY(TWO SHOTS EVERY 4 WEEKS)
     Route: 058
  3. DIAZEPAM. [Concomitant]
     Active Substance: DIAZEPAM
     Dosage: UNK
  4. VOLTAREN [Concomitant]
     Active Substance: DICLOFENAC SODIUM
     Dosage: UNK UNK, 4X/DAY (APPLY TO AFFECTED AREA QID)
     Route: 061
  5. FOLIC ACID. [Concomitant]
     Active Substance: FOLIC ACID
     Indication: RHEUMATOID ARTHRITIS
     Dosage: 4 MG, 1X/DAY
     Route: 048
  6. CELEBREX [Suspect]
     Active Substance: CELECOXIB
     Indication: ARTHRITIS
     Dosage: 200 MG, AS NEEDED( BID)
     Route: 048
  7. SINGULAIR [Concomitant]
     Active Substance: MONTELUKAST SODIUM
     Dosage: UNK
  8. SOLARAZE [Concomitant]
     Active Substance: DICLOFENAC SODIUM
     Indication: TENDONITIS
     Dosage: 3 %, UNK
     Route: 061
     Dates: start: 20150219
  9. VICODIN [Concomitant]
     Active Substance: ACETAMINOPHEN\HYDROCODONE BITARTRATE
     Indication: INTERVERTEBRAL DISC DEGENERATION
     Dosage: UNK ([HYDROCODONE BITARTRATE: 5MG][PARACETAMOL: 300 MG] Q6H)
     Route: 048
  10. CELEBREX [Suspect]
     Active Substance: CELECOXIB
     Indication: TENDONITIS
  11. METHOTREXATE. [Concomitant]
     Active Substance: METHOTREXATE
     Dosage: 0.8 ML, WEEKLY
     Route: 058
  12. VICODIN [Concomitant]
     Active Substance: ACETAMINOPHEN\HYDROCODONE BITARTRATE
     Dosage: UNK ([HYDROCODONE BITARTRATE: 7.5MG][PARACETAMOL: 300 MG] Q6H)
     Route: 048

REACTIONS (10)
  - Gastric ulcer [Unknown]
  - Flatulence [Unknown]
  - Fatigue [Unknown]
  - Drug ineffective [Unknown]
  - Gastrointestinal disorder [Unknown]
  - Arthralgia [Unknown]
  - Musculoskeletal stiffness [Unknown]
  - Nausea [Unknown]
  - Mouth ulceration [Unknown]
  - Pain [Unknown]
